FAERS Safety Report 6936809-X (Version None)
Quarter: 2010Q3

REPORT INFORMATION
  Report Type: 
  Country: None (occurrence: None)
  Receive Date: 20100818
  Receipt Date: 20100804
  Transmission Date: 20110219
  Serious: Yes (Disabling, Other)
  Sender: FDA-Public Use
  Company Number: AVE_01932_2010

PATIENT
  Sex: Female

DRUGS (4)
  1. CLONIDINE [Suspect]
     Indication: HYPERTENSION
     Dosage: (0.2 MG QD, VIA 1/WEEKLY PATCH TRANSDERMAL)
     Route: 062
     Dates: start: 20100601
  2. CAPTOPRIL [Concomitant]
  3. PROPRANOLOL [Concomitant]
  4. CATAPRES /00171101/ [Concomitant]

REACTIONS (4)
  - ARTHRITIS [None]
  - DYSSTASIA [None]
  - PRODUCT SUBSTITUTION ISSUE [None]
  - SOMNOLENCE [None]
